FAERS Safety Report 4943958-4 (Version None)
Quarter: 2006Q1

REPORT INFORMATION
  Report Type: 
  Country: None (occurrence: None)
  Receive Date: 20060313
  Receipt Date: 20060313
  Transmission Date: 20060701
  Serious: Yes (Disabling)
  Sender: FDA-Public Use
  Company Number: None

PATIENT
  Sex: Female
  Weight: 58.9676 kg

DRUGS (2)
  1. CEFEPIME [Suspect]
     Indication: WOUND INFECTION
     Dosage: 1.5 GRAMS Q 8 HOURS IV
     Route: 042
  2. ZOSYN [Suspect]
     Indication: WOUND INFECTION
     Dosage: 4.5 GRAMS Q 8 HOURS IV
     Route: 042

REACTIONS (2)
  - NEUTROPHIL COUNT DECREASED [None]
  - WHITE BLOOD CELL COUNT DECREASED [None]
